FAERS Safety Report 16804983 (Version 1)
Quarter: 2019Q3

REPORT INFORMATION
  Report Type: Spontaneous
  Country: IT (occurrence: IT)
  Receive Date: 20190913
  Receipt Date: 20190913
  Transmission Date: 20191005
  Serious: Yes (Other)
  Sender: FDA-Public Use
  Company Number: PHHY2019IT210413

PATIENT
  Age: 75 Year
  Sex: Female

DRUGS (1)
  1. TERAZOSIN HCL [Suspect]
     Active Substance: TERAZOSIN HYDROCHLORIDE
     Indication: MEDICATION ERROR
     Dosage: 1 DF, TOTAL
     Route: 048
     Dates: start: 20190824, end: 20190824

REACTIONS (3)
  - Hypotension [Recovering/Resolving]
  - Presyncope [Recovering/Resolving]
  - Medication error [Recovering/Resolving]

NARRATIVE: CASE EVENT DATE: 20190824
